FAERS Safety Report 5074701-9 (Version None)
Quarter: 2006Q3

REPORT INFORMATION
  Report Type: 
  Country: None (occurrence: None)
  Receive Date: 20060803
  Receipt Date: 20060720
  Transmission Date: 20061208
  Serious: Yes (Death, Other)
  Sender: FDA-Public Use
  Company Number: 2005S1000105

PATIENT
  Age: 64 Year
  Sex: Male

DRUGS (4)
  1. CUBICIN [Suspect]
     Indication: BACTERAEMIA
     Dosage: 6 MG/KG;Q24H;IV
     Route: 042
     Dates: end: 20050101
  2. CUBICIN [Suspect]
     Indication: DEVICE RELATED INFECTION
     Dosage: 6 MG/KG;Q24H;IV
     Route: 042
     Dates: end: 20050101
  3. CUBICIN [Suspect]
     Indication: DISEASE RECURRENCE
     Dosage: 6 MG/KG;Q24H;IV
     Route: 042
     Dates: end: 20050101
  4. VANCOMYCIN [Concomitant]

REACTIONS (11)
  - ABSCESS LIMB [None]
  - ANTIMICROBIAL SUSCEPTIBILITY TEST INTERMEDIATE [None]
  - ANTIMICROBIAL SUSCEPTIBILITY TEST RESISTANT [None]
  - CANDIDIASIS [None]
  - CATHETER SEPSIS [None]
  - CITROBACTER INFECTION [None]
  - ENTEROCOCCAL BACTERAEMIA [None]
  - OSTEOMYELITIS [None]
  - PYREXIA [None]
  - WOUND INFECTION [None]
  - WOUND INFECTION STAPHYLOCOCCAL [None]
